FAERS Safety Report 23516046 (Version 1)
Quarter: 2024Q1

REPORT INFORMATION
  Report Type: 
  Country: None (occurrence: None)
  Receive Date: 20240213
  Receipt Date: 20240213
  Transmission Date: 20240410
  Serious: No
  Sender: FDA-Public Use
  Company Number: US-ROCHE-3114777

PATIENT
  Weight: 12.09 kg

DRUGS (1)
  1. EVRYSDI [Suspect]
     Active Substance: RISDIPLAM
     Dosage: 0.75MG/ML , 80 ML (ON 100ML BOTTLE)

REACTIONS (3)
  - Bronchial secretion retention [None]
  - Off label use [None]
  - Respiratory syncytial virus infection [None]

NARRATIVE: CASE EVENT DATE: 20230901
